FAERS Safety Report 15937863 (Version 1)
Quarter: 2019Q1

REPORT INFORMATION
  Report Type: Spontaneous
  Country: US (occurrence: US)
  Receive Date: 20190208
  Receipt Date: 20190208
  Transmission Date: 20190417
  Serious: No
  Sender: FDA-Public Use
  Company Number: US-ROCHE-2167885

PATIENT
  Sex: Female
  Weight: 70.82 kg

DRUGS (1)
  1. XOLAIR [Suspect]
     Active Substance: OMALIZUMAB
     Indication: CHRONIC SPONTANEOUS URTICARIA
     Dosage: LAST INJECTION ON: 26/JUL/2018
     Route: 058
     Dates: start: 20151207

REACTIONS (1)
  - Pregnancy [Unknown]
